FAERS Safety Report 6938790-6 (Version None)
Quarter: 2010Q3

REPORT INFORMATION
  Report Type: 
  Country: None (occurrence: None)
  Receive Date: 20100824
  Receipt Date: 20100810
  Transmission Date: 20110219
  Serious: Yes (Hospitalization)
  Sender: FDA-Public Use
  Company Number: CH-ROCHE-717121

PATIENT
  Sex: Male
  Weight: 101 kg

DRUGS (4)
  1. PEGINTERFERON ALFA-2A [Suspect]
     Indication: HEPATITIS C
     Dosage: FORM: LOI, REPORTED AS DAILY DOSE: 25, 7173 UG (180 UG IN 1 WEEK)
     Route: 058
     Dates: start: 20090427, end: 20100326
  2. RIBAVIRIN [Suspect]
     Indication: HEPATITIS C
     Route: 048
     Dates: start: 20090427, end: 20100328
  3. BI 201335 NA [Suspect]
     Indication: HEPATITIS C
     Dosage: DRUG: POSTTREATMENT BI 201335, FORM: KAW
     Route: 048
     Dates: start: 20090427, end: 20091012
  4. IBUPROFEN [Suspect]
     Indication: HEADACHE
     Route: 048
     Dates: start: 20100623, end: 20100629

REACTIONS (2)
  - HYPERTENSION [None]
  - THROMBOTIC THROMBOCYTOPENIC PURPURA [None]
